FAERS Safety Report 20527941 (Version 1)
Quarter: 2022Q1

REPORT INFORMATION
  Report Type: Spontaneous
  Country: US (occurrence: US)
  Receive Date: 20220228
  Receipt Date: 20220228
  Transmission Date: 20220423
  Serious: Yes (Other)
  Sender: FDA-Public Use
  Company Number: US-GLAXOSMITHKLINE-US2022GSK036869

PATIENT
  Sex: Female

DRUGS (8)
  1. ZANTAC [Suspect]
     Active Substance: RANITIDINE HYDROCHLORIDE
     Indication: Abdominal discomfort
     Dosage: UNK UNK, BID
     Route: 065
     Dates: start: 200001, end: 200312
  2. ZANTAC [Suspect]
     Active Substance: RANITIDINE HYDROCHLORIDE
     Indication: Fibromyalgia
  3. ZANTAC [Suspect]
     Active Substance: RANITIDINE HYDROCHLORIDE
     Indication: Abdominal discomfort
     Dosage: UNK UNK, BID
     Route: 065
     Dates: start: 200001, end: 200312
  4. ZANTAC [Suspect]
     Active Substance: RANITIDINE HYDROCHLORIDE
     Indication: Fibromyalgia
  5. RANITIDINE [Suspect]
     Active Substance: RANITIDINE
     Indication: Abdominal discomfort
     Dosage: UNK, BID
     Route: 065
     Dates: start: 200001, end: 200312
  6. RANITIDINE [Suspect]
     Active Substance: RANITIDINE
     Indication: Fibromyalgia
  7. RANITIDINE [Suspect]
     Active Substance: RANITIDINE
     Indication: Abdominal discomfort
     Dosage: UNK, BID
     Route: 065
     Dates: start: 200001, end: 200312
  8. RANITIDINE [Suspect]
     Active Substance: RANITIDINE
     Indication: Fibromyalgia

REACTIONS (1)
  - Breast cancer [Unknown]
